FAERS Safety Report 9462248 (Version 2)
Quarter: 2013Q3

REPORT INFORMATION
  Report Type: Spontaneous
  Country: US (occurrence: US)
  Receive Date: 20130816
  Receipt Date: 20130828
  Transmission Date: 20140515
  Serious: Yes (Hospitalization)
  Sender: FDA-Public Use
  Company Number: US-GLAXOSMITHKLINE-A1037334A

PATIENT
  Age: 69 Year
  Sex: Female

DRUGS (15)
  1. ADVAIR [Suspect]
     Indication: CHRONIC OBSTRUCTIVE PULMONARY DISEASE
     Dosage: 2PUFF TWICE PER DAY
     Route: 055
     Dates: start: 2003
  2. COMBIVENT [Concomitant]
  3. LISINOPRIL [Concomitant]
  4. GABAPENTIN [Concomitant]
  5. REQUIP [Concomitant]
  6. UNKNOWN DRUG FOR ANXIETY [Concomitant]
  7. NASAL SPRAY [Concomitant]
  8. FOSAMAX [Concomitant]
  9. ASPIRIN [Concomitant]
  10. HCTZ [Concomitant]
  11. EFFEXOR XR [Concomitant]
  12. AMLODIPINE [Concomitant]
  13. ZANTAC [Concomitant]
  14. OXYGEN [Concomitant]
  15. NEBULIZER [Concomitant]

REACTIONS (2)
  - Cataract operation [Unknown]
  - Dyspnoea [Unknown]
